FAERS Safety Report 5876438-2 (Version None)
Quarter: 2008Q3

REPORT INFORMATION
  Report Type: 
  Country: None (occurrence: None)
  Receive Date: 20080910
  Receipt Date: 20080903
  Transmission Date: 20090109
  Serious: Yes (Hospitalization)
  Sender: FDA-Public Use
  Company Number: NL-WATSON-2008-05277

PATIENT
  Age: 73 Year
  Sex: Male

DRUGS (2)
  1. COLCHICINE (WATSON LABORATORIES) [Suspect]
     Indication: GOUT
     Dosage: 0.5 MG, DAILY
  2. CLARITHROMYCIN EXTENDED RELEASE [Suspect]
     Indication: PNEUMONIA
     Dosage: UNK
     Route: 065

REACTIONS (2)
  - INHIBITORY DRUG INTERACTION [None]
  - NEUROMYOPATHY [None]
